FAERS Safety Report 9931996 (Version 1)
Quarter: 2014Q1

REPORT INFORMATION
  Report Type: Report from Study
  Country: US (occurrence: US)
  Receive Date: 20140228
  Receipt Date: 20140228
  Transmission Date: 20141002
  Serious: No
  Sender: FDA-Public Use
  Company Number: US-ABBVIE-13P-163-1127968-00

PATIENT
  Age: 68 Year
  Sex: Male
  Weight: 90.35 kg

DRUGS (8)
  1. ANDROGEL [Suspect]
     Indication: BLOOD TESTOSTERONE DECREASED
     Dosage: ONE HALF OF A 5GM PACKET
     Dates: start: 201304
  2. LANTUS [Suspect]
     Indication: DIABETES MELLITUS
  3. METFORMIN [Concomitant]
     Indication: DIABETES MELLITUS
  4. LOPRESSOR [Concomitant]
     Indication: MYOCARDIAL INFARCTION
  5. DIAZEPAM [Concomitant]
     Indication: ANXIETY
  6. ATORVASTATIN [Concomitant]
     Indication: PRODUCT USED FOR UNKNOWN INDICATION
  7. VIRT-VITE FORTE [Concomitant]
     Indication: CARDIAC DISORDER
  8. VIRT-VITE FORTE [Concomitant]
     Indication: INFLAMMATION

REACTIONS (4)
  - Libido disorder [Not Recovered/Not Resolved]
  - Acne [Recovered/Resolved]
  - Therapeutic response unexpected [Unknown]
  - Blood glucose abnormal [Unknown]
